FAERS Safety Report 8081495-1 (Version None)
Quarter: 2012Q1

REPORT INFORMATION
  Report Type: 
  Country: None (occurrence: None)
  Receive Date: 20120130
  Receipt Date: 20120125
  Transmission Date: 20120608
  Serious: Yes (Death, Hospitalization)
  Sender: FDA-Public Use
  Company Number: PHHO2012IL000783

PATIENT
  Sex: Male
  Weight: 60 kg

DRUGS (1)
  1. QAB149 [Suspect]
     Indication: CHRONIC OBSTRUCTIVE PULMONARY DISEASE
     Dosage: UNK
     Dates: start: 20111212, end: 20120108

REACTIONS (4)
  - PULMONARY OEDEMA [None]
  - CARDIAC FIBRILLATION [None]
  - CEREBRAL HAEMORRHAGE [None]
  - CONCOMITANT DISEASE PROGRESSION [None]
